FAERS Safety Report 8304329 (Version 5)
Quarter: 2013Q1

REPORT INFORMATION
  Report Type: Report from Study
  Country: PL (occurrence: PL)
  Receive Date: 20111221
  Receipt Date: 20130121
  Transmission Date: 20140127
  Serious: Yes (Hospitalization)
  Sender: FDA-Public Use
  Company Number: PL-UCBSA-047747

PATIENT
  Age: 74 Year
  Sex: Female
  Weight: 81 kg

DRUGS (21)
  1. CERTOLIZUMAB PEGOL [Suspect]
     Indication: RHEUMATOID ARTHRITIS
     Route: 058
     Dates: start: 20101201, end: 20111130
  2. ARAVA [Concomitant]
     Indication: RHEUMATOID ARTHRITIS
     Route: 048
     Dates: start: 20120223
  3. ARAVA [Concomitant]
     Indication: RHEUMATOID ARTHRITIS
     Route: 048
     Dates: start: 20110307, end: 20111130
  4. ARAVA [Concomitant]
     Indication: RHEUMATOID ARTHRITIS
     Route: 048
     Dates: start: 20111217, end: 20111228
  5. ENCORTON [Concomitant]
     Indication: RHEUMATOID ARTHRITIS
     Route: 048
     Dates: start: 20110107, end: 20111206
  6. ENCORTON [Concomitant]
     Indication: RHEUMATOID ARTHRITIS
     Route: 048
     Dates: start: 20111207, end: 20111230
  7. ENCORTON [Concomitant]
     Indication: RHEUMATOID ARTHRITIS
     Route: 048
     Dates: start: 20111231, end: 20120105
  8. ENCORTON [Concomitant]
     Indication: RHEUMATOID ARTHRITIS
     Route: 048
     Dates: start: 20120106, end: 20120222
  9. ENCORTON [Concomitant]
     Indication: RHEUMATOID ARTHRITIS
     Route: 048
     Dates: start: 20120223, end: 20120307
  10. ENCORTON [Concomitant]
     Indication: RHEUMATOID ARTHRITIS
     Route: 048
     Dates: start: 20120308
  11. CALPEROS [Concomitant]
     Indication: OSTEOPOROSIS PROPHYLAXIS
     Route: 048
     Dates: start: 200909
  12. AULIN [Concomitant]
     Indication: RHEUMATOID ARTHRITIS
     Route: 048
     Dates: start: 20091015
  13. HELICID [Concomitant]
     Indication: PROPHYLAXIS
     Route: 048
     Dates: start: 200909
  14. TRAMAL [Concomitant]
     Indication: OSTEOARTHRITIS
     Route: 048
     Dates: start: 20110307
  15. TRAMAL [Concomitant]
     Indication: RHEUMATOID ARTHRITIS
     Route: 048
     Dates: start: 20110307
  16. ZALDIAR [Concomitant]
     Indication: RHEUMATOID ARTHRITIS
     Dosage: 1 TAB AS NECESSARY
     Route: 048
     Dates: start: 20110307, end: 20111215
  17. ZALDIAR [Concomitant]
     Indication: OSTEOARTHRITIS
     Dosage: 1 TAB AS NECESSARY
     Route: 048
     Dates: start: 20110307, end: 20111215
  18. ZALDIAR [Concomitant]
     Indication: ANALGESIC THERAPY
     Dosage: 1 TAB AS NECESSARY
     Route: 048
     Dates: start: 20110307, end: 20111215
  19. ZALDIAR [Concomitant]
     Indication: RHEUMATOID ARTHRITIS
     Dosage: 1 TABLET TID
     Route: 048
     Dates: start: 20111216, end: 20120208
  20. ZALDIAR [Concomitant]
     Indication: OSTEOARTHRITIS
     Dosage: 1 TABLET TID
     Route: 048
     Dates: start: 20111216, end: 20120208
  21. ZALDIAR [Concomitant]
     Indication: ANALGESIC THERAPY
     Dosage: 1 TABLET TID
     Route: 048
     Dates: start: 20111216, end: 20120208

REACTIONS (1)
  - Joint prosthesis user [Recovered/Resolved with Sequelae]
